FAERS Safety Report 5328299-8 (Version None)
Quarter: 2007Q2

REPORT INFORMATION
  Report Type: 
  Country: None (occurrence: None)
  Receive Date: 20070515
  Receipt Date: 20070515
  Transmission Date: 20071010
  Serious: Yes (Other)
  Sender: FDA-Public Use
  Company Number: None

PATIENT
  Sex: Male

DRUGS (10)
  1. VYTORIN [Suspect]
     Indication: HYPERLIPIDAEMIA
     Dosage: 1 TABLET PO DAILY PO
     Route: 048
     Dates: start: 20070110, end: 20070423
  2. CYMBALTA [Concomitant]
  3. MORPHINE [Concomitant]
  4. VYTORIN [Concomitant]
  5. TEMAZEPAM [Concomitant]
  6. OMEPRAZOLE [Concomitant]
  7. DOVONEX [Concomitant]
  8. LIDODERM [Concomitant]
  9. ASPIRIN [Concomitant]
  10. SENNA [Concomitant]

REACTIONS (1)
  - PAIN IN EXTREMITY [None]
